FAERS Safety Report 8036984-2 (Version None)
Quarter: 2012Q1

REPORT INFORMATION
  Report Type: 
  Country: None (occurrence: None)
  Receive Date: 20120109
  Receipt Date: 20111227
  Transmission Date: 20120608
  Serious: Yes (Other)
  Sender: FDA-Public Use
  Company Number: TCI2011A06060

PATIENT
  Age: 86 Year
  Sex: Female

DRUGS (1)
  1. ACTOS [Suspect]
     Indication: BLOOD GLUCOSE ABNORMAL
     Dosage: PER ORAL
     Route: 048

REACTIONS (1)
  - NO ADVERSE EVENT [None]
